FAERS Safety Report 20835599 (Version 1)
Quarter: 2022Q2

REPORT INFORMATION
  Report Type: Spontaneous
  Country: US (occurrence: US)
  Receive Date: 20220516
  Receipt Date: 20220516
  Transmission Date: 20220720
  Serious: Yes (Hospitalization, Other)
  Sender: FDA-Public Use
  Company Number: US-JAZZ-2022-US-016420

PATIENT
  Sex: Male

DRUGS (1)
  1. XYREM [Suspect]
     Active Substance: SODIUM OXYBATE
     Indication: Narcolepsy
     Route: 048

REACTIONS (23)
  - Lower limb fracture [Recovered/Resolved]
  - Drug dependence [Unknown]
  - Hallucination [Recovered/Resolved]
  - Loss of consciousness [Unknown]
  - Diabetes mellitus [Unknown]
  - Shock [Recovered/Resolved]
  - Fall [Recovered/Resolved]
  - Aggression [Unknown]
  - Withdrawal syndrome [Recovered/Resolved]
  - Pyrexia [Recovered/Resolved]
  - Tremor [Recovered/Resolved]
  - Asthenia [Recovered/Resolved]
  - Tremor [Unknown]
  - Head titubation [Unknown]
  - Blood glucose increased [Recovered/Resolved]
  - Hypertension [Recovered/Resolved]
  - Depression [Recovering/Resolving]
  - Weight decreased [Unknown]
  - Micturition disorder [Recovering/Resolving]
  - Prostate induration [Unknown]
  - Sexual dysfunction [Recovered/Resolved]
  - Somnambulism [Recovered/Resolved]
  - Insomnia [Unknown]

NARRATIVE: CASE EVENT DATE: 20210101
